FAERS Safety Report 10417597 (Version 2)
Quarter: 2014Q3

REPORT INFORMATION
  Report Type: Spontaneous
  Country: RU (occurrence: RU)
  Receive Date: 20140829
  Receipt Date: 20140910
  Transmission Date: 20150326
  Serious: Yes (Death)
  Sender: FDA-Public Use
  Company Number: RU-ASTRAZENECA-2014SE64150

PATIENT
  Age: 22605 Day
  Sex: Male
  Weight: 98 kg

DRUGS (9)
  1. HEPARIN [Concomitant]
     Active Substance: HEPARIN SODIUM
     Indication: ACUTE CORONARY SYNDROME
     Route: 040
     Dates: start: 20140825, end: 20140825
  2. HEPARIN [Concomitant]
     Active Substance: HEPARIN SODIUM
     Indication: ACUTE CORONARY SYNDROME
     Route: 041
     Dates: start: 20140825
  3. ATORVASTATINE [Concomitant]
     Active Substance: ATORVASTATIN
     Indication: ACUTE CORONARY SYNDROME
     Route: 048
     Dates: start: 20140825
  4. OMEZ (OMEPRAZOLE) [Concomitant]
     Route: 048
     Dates: start: 20140825
  5. BRILINTA [Suspect]
     Active Substance: TICAGRELOR
     Indication: ACUTE CORONARY SYNDROME
     Route: 048
     Dates: start: 20140825, end: 20140825
  6. BRILINTA [Suspect]
     Active Substance: TICAGRELOR
     Indication: ACUTE CORONARY SYNDROME
     Route: 048
     Dates: start: 20140825
  7. ENALAPRIL [Concomitant]
     Active Substance: ENALAPRIL
     Indication: ACUTE CORONARY SYNDROME
     Route: 048
     Dates: start: 20140825
  8. EGILOK (METOPROLOL) [Concomitant]
     Indication: ACUTE CORONARY SYNDROME
     Route: 048
     Dates: start: 20140825
  9. CARDIASK (ACETYLSALICYLIC ACID) [Concomitant]
     Indication: ACUTE CORONARY SYNDROME
     Route: 048
     Dates: start: 20140825

REACTIONS (2)
  - Myocardial rupture [Fatal]
  - Cardiogenic shock [Fatal]

NARRATIVE: CASE EVENT DATE: 20140826
